FAERS Safety Report 5044819-5 (Version None)
Quarter: 2006Q3

REPORT INFORMATION
  Report Type: 
  Country: None (occurrence: None)
  Receive Date: 20060707
  Receipt Date: 20060626
  Transmission Date: 20061208
  Serious: Yes (Hospitalization)
  Sender: FDA-Public Use
  Company Number: 2006SE03567

PATIENT
  Age: 51 Year
  Sex: Male

DRUGS (5)
  1. BLOPRESS TABLETS 4 [Suspect]
     Indication: HYPERTENSION
     Route: 048
     Dates: start: 20060401, end: 20060501
  2. FOSAMAC(ALENDRONATE SODIUM HYDRATE) [Concomitant]
     Route: 048
  3. PENTASA [Concomitant]
     Route: 065
  4. BIOFERMIN [Concomitant]
     Route: 048
  5. BECLOMETHASONE DIPROPIONATE [Concomitant]
     Route: 065

REACTIONS (3)
  - C-REACTIVE PROTEIN INCREASED [None]
  - HEPATIC FUNCTION ABNORMAL [None]
  - PYREXIA [None]
